FAERS Safety Report 6070294-8 (Version None)
Quarter: 2009Q1

REPORT INFORMATION
  Report Type: 
  Country: None (occurrence: None)
  Receive Date: 20090209
  Receipt Date: 20090121
  Transmission Date: 20090719
  Serious: Yes (Other)
  Sender: FDA-Public Use
  Company Number: MX-PFIZER INC-2007072225

PATIENT

DRUGS (13)
  1. BLINDED *VANCOMYCIN [Suspect]
     Indication: PNEUMONIA
     Dosage: EVERY 4 DAYS
     Route: 042
     Dates: start: 20070822, end: 20070828
  2. BLINDED LINEZOLID [Suspect]
     Indication: PNEUMONIA
     Dosage: EVERY 4 DAYS
     Route: 042
     Dates: start: 20070822, end: 20070828
  3. OFLOXACIN [Concomitant]
     Route: 042
     Dates: start: 20070811, end: 20070819
  4. CEFTRIAXONE [Concomitant]
     Route: 042
     Dates: start: 20070812, end: 20070816
  5. CEFTAZIDIME [Concomitant]
     Route: 042
     Dates: start: 20070819, end: 20070824
  6. AMIKACIN [Concomitant]
     Route: 042
     Dates: start: 20070819, end: 20070823
  7. CEFEPIME [Concomitant]
     Route: 042
     Dates: start: 20070822
  8. NIFEDIPINE [Concomitant]
     Route: 048
     Dates: start: 20070822, end: 20070827
  9. ACETAMINOPHEN [Concomitant]
     Route: 048
     Dates: start: 20070823
  10. INSULIN [Concomitant]
     Route: 058
     Dates: start: 20070822
  11. RANITIDINE [Concomitant]
     Route: 042
     Dates: start: 20070822
  12. HEPARIN [Concomitant]
     Route: 058
     Dates: start: 20070822
  13. PRAZOSIN [Concomitant]
     Route: 048
     Dates: start: 20070822

REACTIONS (1)
  - CARDIAC TAMPONADE [None]
